FAERS Safety Report 20816359 (Version 1)
Quarter: 2022Q2

REPORT INFORMATION
  Report Type: Report from Study
  Country: US (occurrence: US)
  Receive Date: 20220512
  Receipt Date: 20220512
  Transmission Date: 20220721
  Serious: Yes (Other)
  Sender: FDA-Public Use
  Company Number: US-BRISTOL-MYERS SQUIBB COMPANY-2022-031559

PATIENT
  Age: 80 Year
  Sex: Male
  Weight: 90.718 kg

DRUGS (1)
  1. REVLIMID [Suspect]
     Active Substance: LENALIDOMIDE
     Indication: Plasma cell myeloma
     Route: 048
     Dates: start: 20150713

REACTIONS (3)
  - Blood calcium decreased [Unknown]
  - Diarrhoea [Unknown]
  - Anal incontinence [Unknown]
